FAERS Safety Report 6739608-7 (Version None)
Quarter: 2010Q2

REPORT INFORMATION
  Report Type: 
  Country: None (occurrence: None)
  Receive Date: 20100525
  Receipt Date: 20100519
  Transmission Date: 20101027
  Serious: Yes (Other)
  Sender: FDA-Public Use
  Company Number: PL-ROCHE-684853

PATIENT
  Sex: Female
  Weight: 67 kg

DRUGS (2)
  1. AVASTIN [Suspect]
     Indication: COLORECTAL CANCER
     Route: 042
     Dates: start: 20090922, end: 20100323
  2. XELODA [Suspect]
     Indication: NEOPLASM
     Dosage: FREQUENCY:14 DAYS/ 7 DAYS INTERVAL.
     Route: 048
     Dates: end: 20100329

REACTIONS (2)
  - ARTHRALGIA [None]
  - BONE PAIN [None]
